FAERS Safety Report 5222429-4 (Version None)
Quarter: 2007Q1

REPORT INFORMATION
  Report Type: 
  Country: None (occurrence: None)
  Receive Date: 20070129
  Receipt Date: 20070119
  Transmission Date: 20070707
  Serious: Yes (Hospitalization)
  Sender: FDA-Public Use
  Company Number: PHHO2007AR01663

PATIENT
  Age: 48 Year
  Sex: Female

DRUGS (3)
  1. ZELMAC / HTF 919A [Suspect]
     Dosage: 6 MG, BID
     Route: 048
     Dates: end: 20070114
  2. ZELMAC / HTF 919A [Suspect]
     Dosage: NO TREATMENT
     Dates: start: 20070115, end: 20070115
  3. ZELMAC / HTF 919A [Suspect]
     Dosage: 6 MG, BID
     Route: 048
     Dates: start: 20070116

REACTIONS (1)
  - HYSTERECTOMY [None]
